FAERS Safety Report 17279462 (Version 1)
Quarter: 2020Q1

REPORT INFORMATION
  Report Type: Spontaneous
  Country: US (occurrence: US)
  Receive Date: 20200116
  Receipt Date: 20200116
  Transmission Date: 20200409
  Serious: Yes (Hospitalization)
  Sender: FDA-Public Use
  Company Number: US-009507513-2001USA002891

PATIENT
  Sex: Female

DRUGS (3)
  1. ROCURONIUM BROMIDE. [Concomitant]
     Active Substance: ROCURONIUM BROMIDE
     Indication: INDUCTION OF ANAESTHESIA
     Dosage: 30 MILLIGRAMS
  2. BRIDION [Suspect]
     Active Substance: SUGAMMADEX
     Dosage: 100 MG
  3. BRIDION [Suspect]
     Active Substance: SUGAMMADEX
     Dosage: 200 MG, ONE TIME ONLY, (STRENGTH: 100MG/ML)
     Route: 042

REACTIONS (1)
  - Drug ineffective [Recovered/Resolved]
